FAERS Safety Report 7593426-9 (Version None)
Quarter: 2011Q3

REPORT INFORMATION
  Report Type: 
  Country: None (occurrence: None)
  Receive Date: 20110706
  Receipt Date: 20110630
  Transmission Date: 20111222
  Serious: Yes (Disabling)
  Sender: FDA-Public Use
  Company Number: ES-MERCK-1107ESP00001

PATIENT
  Age: 74 Year
  Sex: Male
  Weight: 77 kg

DRUGS (17)
  1. DIAZEPAM [Concomitant]
     Route: 065
  2. DOMPERIDONE [Concomitant]
     Route: 065
  3. SINEMET [Concomitant]
     Route: 065
  4. CALCIUM CARBONATE AND CHOLECALCIFEROL [Concomitant]
     Route: 065
  5. NALOXONE HYDROCHLORIDE AND OXYCODONE HYDROCHLORIDE [Concomitant]
     Route: 065
  6. FOSAMAX PLUS D [Concomitant]
     Route: 065
  7. OMEPRAZOLE [Concomitant]
     Route: 048
  8. IBUPROFEN [Concomitant]
     Route: 065
  9. NICARDIPINE HYDROCHLORIDE [Concomitant]
     Route: 065
  10. RANITIDINE [Concomitant]
     Route: 065
  11. ASPIRIN [Concomitant]
     Route: 065
  12. ZOCOR [Suspect]
     Indication: HYPERCHOLESTEROLAEMIA
     Route: 048
  13. FUSIDATE SODIUM [Suspect]
     Indication: DEVICE RELATED INFECTION
     Route: 048
     Dates: start: 20110314, end: 20110414
  14. FUSIDATE SODIUM [Suspect]
     Indication: JOINT PROSTHESIS USER
     Route: 048
     Dates: start: 20110314, end: 20110414
  15. TORSEMIDE SODIUM [Concomitant]
     Route: 065
  16. DOXYCYCLINE HYCLATE [Concomitant]
     Route: 065
  17. VASOTEC [Concomitant]
     Route: 065

REACTIONS (4)
  - MYOGLOBIN URINE PRESENT [None]
  - BLOOD CREATINE PHOSPHOKINASE INCREASED [None]
  - DRUG INTERACTION [None]
  - RHABDOMYOLYSIS [None]
